FAERS Safety Report 15662396 (Version 2)
Quarter: 2018Q4

REPORT INFORMATION
  Report Type: Spontaneous
  Country: PL (occurrence: PL)
  Receive Date: 20181127
  Receipt Date: 20181129
  Transmission Date: 20190205
  Serious: Yes (Other)
  Sender: FDA-Public Use
  Company Number: PHHY2018PL166516

PATIENT
  Sex: Female

DRUGS (4)
  1. PERJETA [Suspect]
     Active Substance: PERTUZUMAB
     Indication: INVASIVE DUCTAL BREAST CARCINOMA
     Dosage: 1 OT, Q3W
     Route: 065
  2. DOCETAXEL. [Suspect]
     Active Substance: DOCETAXEL
     Indication: INVASIVE DUCTAL BREAST CARCINOMA
     Dosage: 1 OT, Q3W
     Route: 065
  3. HERCEPTIN [Suspect]
     Active Substance: TRASTUZUMAB
     Indication: INVASIVE DUCTAL BREAST CARCINOMA
     Dosage: 1 OT, Q3W
     Route: 065
  4. TAXOL [Suspect]
     Active Substance: PACLITAXEL
     Indication: INVASIVE DUCTAL BREAST CARCINOMA
     Dosage: 1 OT, Q3W
     Route: 065

REACTIONS (29)
  - Neuralgia [Unknown]
  - Urethral pain [Unknown]
  - Haemorrhoids [Unknown]
  - Mucous membrane disorder [Unknown]
  - Parosmia [Unknown]
  - Abdominal pain upper [Unknown]
  - Vision blurred [Unknown]
  - Abdominal discomfort [Unknown]
  - Oropharyngeal discomfort [Unknown]
  - Insomnia [Unknown]
  - Fatigue [Unknown]
  - Palpitations [Unknown]
  - Sexual dysfunction [Unknown]
  - Diarrhoea [Unknown]
  - Vulvovaginal pain [Unknown]
  - Hot flush [Unknown]
  - Sensory disturbance [Unknown]
  - Poor quality sleep [Unknown]
  - Pain [Unknown]
  - Bone pain [Unknown]
  - Constipation [Unknown]
  - Asthenia [Unknown]
  - Rhinalgia [Unknown]
  - General physical health deterioration [Unknown]
  - Feeling abnormal [Unknown]
  - Dry eye [Unknown]
  - Arthralgia [Unknown]
  - Alopecia [Unknown]
  - Dysgeusia [Unknown]
